FAERS Safety Report 25997200 (Version 2)
Quarter: 2025Q4

REPORT INFORMATION
  Report Type: Spontaneous
  Country: US (occurrence: US)
  Receive Date: 20251104
  Receipt Date: 20251107
  Transmission Date: 20260118
  Serious: No
  Sender: PFIZER
  Company Number: US-PFIZER INC-202500215226

PATIENT
  Age: 17 Year
  Sex: Male

DRUGS (1)
  1. CIBINQO [Suspect]
     Active Substance: ABROCITINIB
     Indication: Dermatitis atopic
     Dosage: 100 MG, DAILY (TAKE ONE TABLET DAILY,QUANTITY: 30 TABLET REFILLS: 11 )
     Route: 048

REACTIONS (4)
  - Therapeutic product effect incomplete [Unknown]
  - Condition aggravated [Unknown]
  - Treatment noncompliance [Unknown]
  - Loss of personal independence in daily activities [Unknown]
